FAERS Safety Report 8576763-0 (Version None)
Quarter: 2012Q3

REPORT INFORMATION
  Report Type: 
  Country: None (occurrence: None)
  Receive Date: 20120807
  Receipt Date: 20120502
  Transmission Date: 20120928
  Serious: Yes (Other)
  Sender: FDA-Public Use
  Company Number: US-GILEAD-2012-0053666

PATIENT
  Sex: Female

DRUGS (2)
  1. REMODULIN [Concomitant]
  2. LETAIRIS [Suspect]
     Indication: PRODUCT USED FOR UNKNOWN INDICATION
     Dosage: 5 MG, UNK
     Route: 048
     Dates: start: 20111006, end: 20120502

REACTIONS (10)
  - OEDEMA PERIPHERAL [None]
  - UNEVALUABLE EVENT [None]
  - ATRIAL FLUTTER [None]
  - CARDIOVERSION [None]
  - URTICARIA [None]
  - DYSPNOEA [None]
  - OEDEMA [None]
  - MALAISE [None]
  - PRURITUS [None]
  - FLUID OVERLOAD [None]
